FAERS Safety Report 17750294 (Version 1)
Quarter: 2020Q2

REPORT INFORMATION
  Report Type: Spontaneous
  Country: US (occurrence: US)
  Receive Date: 20200506
  Receipt Date: 20200506
  Transmission Date: 20200714
  Serious: No
  Sender: FDA-Public Use
  Company Number: US-PFIZER INC-2020179530

PATIENT
  Age: 52 Year
  Sex: Female

DRUGS (1)
  1. XELJANZ XR [Suspect]
     Active Substance: TOFACITINIB CITRATE
     Indication: RHEUMATOID ARTHRITIS
     Dosage: 11 MG, DAILY
     Route: 048
     Dates: start: 201909

REACTIONS (12)
  - Chest pain [Unknown]
  - Night sweats [Unknown]
  - Joint swelling [Unknown]
  - Influenza [Unknown]
  - Productive cough [Unknown]
  - Peripheral swelling [Unknown]
  - Cough [Unknown]
  - Condition aggravated [Unknown]
  - Arthralgia [Unknown]
  - Product dose omission [Unknown]
  - Pain in extremity [Unknown]
  - Loss of personal independence in daily activities [Unknown]
